FAERS Safety Report 17429604 (Version 2)
Quarter: 2020Q1

REPORT INFORMATION
  Report Type: Report from Study
  Country: CA (occurrence: CA)
  Receive Date: 20200218
  Receipt Date: 20200218
  Transmission Date: 20200409
  Serious: Yes (Death, Other)
  Sender: FDA-Public Use
  Company Number: CA-PFIZER INC-2020060838

PATIENT

DRUGS (4)
  1. HEPARIN SODIUM. [Suspect]
     Active Substance: HEPARIN SODIUM
     Dosage: 20000 IU, UNK
     Route: 041
  2. DEXTROSE 5% [Concomitant]
     Active Substance: DEXTROSE
     Dosage: UNK (STANDARD HEPARIN IN 500 ML OF A 5 PERCENT DEXTROSE SOLUTION, 32 ML ADMINISTERED PER HOUR)
  3. HEPARIN SODIUM. [Suspect]
     Active Substance: HEPARIN SODIUM
     Indication: DEEP VEIN THROMBOSIS
     Dosage: 5000 IU, UNK
     Route: 040
  4. WARFARIN [Concomitant]
     Active Substance: WARFARIN
     Indication: DEEP VEIN THROMBOSIS
     Dosage: 10 MG, UNK (SCHEDULED TO RECEIVE WARFARIN FOR AT LEAST THREE MONTHS)

REACTIONS (1)
  - Pulmonary embolism [Fatal]
